FAERS Safety Report 13395920 (Version 1)
Quarter: 2017Q2

REPORT INFORMATION
  Report Type: Spontaneous
  Country: US (occurrence: US)
  Receive Date: 20170403
  Receipt Date: 20170403
  Transmission Date: 20170830
  Serious: Yes (Other)
  Sender: FDA-Public Use
  Company Number: US-AUROBINDO-AUR-APL-2017-31660

PATIENT

DRUGS (2)
  1. DIPHENHYDRAMINE. [Suspect]
     Active Substance: DIPHENHYDRAMINE
     Indication: PRODUCT USED FOR UNKNOWN INDICATION
     Dosage: 50 MG
     Route: 048
  2. DIPHENHYDRAMINE. [Suspect]
     Active Substance: DIPHENHYDRAMINE
     Dosage: 50 MG
     Route: 042

REACTIONS (8)
  - Dizziness [Unknown]
  - Malaise [Unknown]
  - Nausea [Unknown]
  - Depressed level of consciousness [Unknown]
  - Flushing [Unknown]
  - Nystagmus [Unknown]
  - Overdose [Unknown]
  - Anticholinergic syndrome [Unknown]
